FAERS Safety Report 8833520 (Version 2)
Quarter: 2012Q4

REPORT INFORMATION
  Report Type: 
  Country: US (occurrence: US)
  Receive Date: 20121010
  Receipt Date: 20121023
  Transmission Date: 20130627
  Serious: No
  Sender: FDA-Public Use
  Company Number: US-VERTEX PHARMACEUTICAL INC.-2012-021979

PATIENT
  Age: 38 Year
  Sex: Male

DRUGS (5)
  1. INCIVEK [Suspect]
     Indication: HEPATITIS C
     Dosage: 3 DF, tid
     Route: 048
     Dates: start: 20120827
  2. RIBAVIRIN [Suspect]
     Indication: HEPATITIS C
     Dosage: 600 mg, bid
     Route: 048
     Dates: start: 20120827
  3. PEGASYS [Suspect]
     Indication: HEPATITIS C
     Dosage: 180 ?g, weekly
     Route: 058
     Dates: start: 20120827
  4. EPZICOM [Concomitant]
  5. REYATAZ [Concomitant]

REACTIONS (2)
  - Incorrect dose administered [Recovered/Resolved]
  - Off label use [Unknown]
